FAERS Safety Report 5453231-6 (Version None)
Quarter: 2007Q3

REPORT INFORMATION
  Report Type: 
  Country: None (occurrence: None)
  Receive Date: 20070914
  Receipt Date: 20070905
  Transmission Date: 20080115
  Serious: Yes (Other)
  Sender: FDA-Public Use
  Company Number: US-PFIZER INC-2007074823

PATIENT
  Sex: Male
  Weight: 77.727 kg

DRUGS (10)
  1. CHANTIX [Suspect]
     Indication: SMOKING CESSATION THERAPY
     Route: 048
     Dates: start: 20070801, end: 20070904
  2. SERTRALINE [Concomitant]
     Indication: DEPRESSION
  3. SIMVASTATIN [Concomitant]
  4. TRAMADOL HCL [Concomitant]
  5. OMEPRAZOLE [Concomitant]
  6. HYDROCODONE BITARTRATE + ACETAMINOPHEN [Concomitant]
  7. CLONAZEPAM [Concomitant]
  8. MOMETASONE FUROATE [Concomitant]
     Route: 055
  9. ATROVENT [Concomitant]
     Route: 055
  10. FORADIL [Concomitant]
     Route: 055

REACTIONS (2)
  - DEPRESSION [None]
  - SUICIDAL IDEATION [None]
